FAERS Safety Report 8954631 (Version 1)
Quarter: 2012Q4

REPORT INFORMATION
  Report Type: 
  Country: US (occurrence: US)
  Receive Date: 20121207
  Receipt Date: 20121207
  Transmission Date: 20130627
  Serious: No
  Sender: FDA-Public Use
  Company Number: US-ASTRAZENECA-2012SE88663

PATIENT
  Age: 54 Year
  Sex: Male

DRUGS (19)
  1. ZESTRIL [Suspect]
     Route: 048
  2. OMEPRAZOLE [Suspect]
     Dosage: FOR TWO WEEKS
     Route: 048
  3. ELAVIL [Suspect]
     Route: 065
  4. LYRICA [Concomitant]
  5. SIMVASTATIN [Concomitant]
  6. HCTZ [Concomitant]
  7. PEPCID [Concomitant]
  8. NAPROXEN [Concomitant]
  9. VITAMIN C [Concomitant]
  10. VITAMIN D3 [Concomitant]
  11. TRAMADOL [Concomitant]
  12. METFORM [Concomitant]
  13. HYDROCODON [Concomitant]
  14. LANTUS [Concomitant]
  15. ALLOPURINOL [Concomitant]
  16. GLIMEPIRIDE [Concomitant]
  17. GERFBAZEP [Concomitant]
  18. RASHOUL [Concomitant]
  19. ASA [Concomitant]

REACTIONS (3)
  - Fatigue [Unknown]
  - Diabetes mellitus [Unknown]
  - Irritability [Unknown]
